FAERS Safety Report 5257044-X (Version None)
Quarter: 2007Q1

REPORT INFORMATION
  Report Type: 
  Country: None (occurrence: None)
  Receive Date: 20070307
  Receipt Date: 20070223
  Transmission Date: 20070707
  Serious: Yes (Other)
  Sender: FDA-Public Use
  Company Number: PHBS2007JP03657

PATIENT
  Sex: Female

DRUGS (3)
  1. TEGRETOL [Suspect]
     Indication: TRIGEMINAL NEURALGIA
     Dosage: 1 TABLET, BID
     Route: 048
     Dates: start: 20070210, end: 20070212
  2. MUCOSTA [Concomitant]
     Dosage: 2 DF/DAY
     Route: 048
     Dates: start: 20070210, end: 20070212
  3. NEUROTROPIN [Concomitant]
     Dosage: 2 DF/DAY
     Route: 048
     Dates: start: 20070210, end: 20070212

REACTIONS (4)
  - DYSPHONIA [None]
  - GLOSSITIS [None]
  - ORAL MUCOSA EROSION [None]
  - STOMATITIS [None]
